FAERS Safety Report 6551535-7 (Version None)
Quarter: 2010Q1

REPORT INFORMATION
  Report Type: 
  Country: None (occurrence: None)
  Receive Date: 20100126
  Receipt Date: 20100113
  Transmission Date: 20100710
  Serious: Yes (Hospitalization)
  Sender: FDA-Public Use
  Company Number: PHHY2010US02209

PATIENT

DRUGS (9)
  1. RECLAST [Suspect]
     Indication: OSTEOPOROSIS
     Dosage: 5 MG, UNK
     Dates: start: 20090714
  2. SYNTHROID [Concomitant]
  3. NITROGLYCERIN [Concomitant]
  4. LUMIGAN [Concomitant]
  5. HERPES VIRUS VACCINE [Concomitant]
  6. CRESTOR [Concomitant]
  7. COSOPT [Concomitant]
  8. AVAPRO [Concomitant]
  9. ASPIRIN [Concomitant]

REACTIONS (1)
  - SUBDURAL HAEMATOMA [None]
